FAERS Safety Report 4453678-0 (Version None)
Quarter: 2004Q3

REPORT INFORMATION
  Report Type: 
  Country: None (occurrence: None)
  Receive Date: 20040902
  Receipt Date: 20040601
  Transmission Date: 20050211
  Serious: No
  Sender: FDA-Public Use
  Company Number: 200418154BWH

PATIENT
  Age: 49 Year
  Sex: Male
  Weight: 68.0396 kg

DRUGS (9)
  1. LEVITRA [Suspect]
     Indication: ERECTILE DYSFUNCTION
     Dosage: 10 MG ; 20 MG : TOTAL DAILY, ORAL
     Route: 048
     Dates: start: 20031101
  2. LEVITRA [Suspect]
     Indication: ERECTILE DYSFUNCTION
     Dosage: 10 MG ; 20 MG : TOTAL DAILY, ORAL
     Route: 048
     Dates: start: 20040524
  3. KLONOPIN [Concomitant]
  4. LIPITOR [Concomitant]
  5. PROZAC [Concomitant]
  6. REMERON [Concomitant]
  7. ANTIBIOTIC THERAPY [Concomitant]
  8. VIAGRA [Concomitant]
  9. CIALIS ^GLAXOSMITHKLINE^ [Concomitant]

REACTIONS (2)
  - ERECTILE DYSFUNCTION [None]
  - HEADACHE [None]
